FAERS Safety Report 10009511 (Version 1)
Quarter: 2014Q1

REPORT INFORMATION
  Report Type: Spontaneous
  Country: US (occurrence: US)
  Receive Date: 20140312
  Receipt Date: 20140312
  Transmission Date: 20141002
  Serious: Yes (Other)
  Sender: FDA-Public Use
  Company Number: US-INCYTE CORPORATION-2012IN001826

PATIENT
  Age: 66 Year
  Sex: Female

DRUGS (6)
  1. JAKAFI [Suspect]
     Indication: MYELOFIBROSIS
     Dosage: 10 MG, BID
     Route: 048
     Dates: start: 20120830
  2. ASPIRIN [Concomitant]
     Dosage: 81 MG, UNK
  3. SERTRALINE [Concomitant]
  4. XANAX [Concomitant]
  5. LEVOTHYROXINE [Concomitant]
  6. ADVIL PM [Concomitant]

REACTIONS (1)
  - Anaemia [Unknown]
